FAERS Safety Report 24069212 (Version 1)
Quarter: 2024Q3

REPORT INFORMATION
  Report Type: Report from Study
  Country: US (occurrence: US)
  Receive Date: 20240710
  Receipt Date: 20240710
  Transmission Date: 20241016
  Serious: No
  Sender: ROCHE
  Company Number: US-ROCHE-3448023

PATIENT
  Sex: Female

DRUGS (1)
  1. ALECENSA [Suspect]
     Active Substance: ALECTINIB HYDROCHLORIDE
     Indication: Metastasis
     Dosage: TAKE 3 TABLETS PO BID
     Route: 048

REACTIONS (3)
  - Product prescribing error [Unknown]
  - Off label use [Unknown]
  - No adverse event [Unknown]
